FAERS Safety Report 4355438-8 (Version None)
Quarter: 2004Q2

REPORT INFORMATION
  Report Type: 
  Country: None (occurrence: None)
  Receive Date: 20040504
  Receipt Date: 20040421
  Transmission Date: 20050107
  Serious: Yes (Hospitalization, Other)
  Sender: FDA-Public Use
  Company Number: 2004022855

PATIENT
  Age: 57 Year
  Sex: Female
  Weight: 39.9 kg

DRUGS (8)
  1. VIAGRA [Suspect]
     Indication: PULMONARY HYPERTENSION
     Dosage: 50 MG, ORAL
     Route: 048
     Dates: start: 20040326, end: 20040331
  2. BERAPROST SODIUM (BERAPROST SODIUM) [Suspect]
     Indication: ILL-DEFINED DISORDER
     Dosage: 240 MCG, ORAL
     Route: 048
     Dates: end: 20040331
  3. BUFFERIN [Suspect]
     Indication: ILL-DEFINED DISORDER
     Dosage: 81 MG, ORAL
     Route: 048
     Dates: end: 20040331
  4. WARFARIN SODIUM [Suspect]
     Indication: ILL-DEFINED DISORDER
     Dosage: 2.5 MG (DAILY), ORAL
     Route: 048
  5. ACETYLSALICYLIC ACID SRT [Concomitant]
  6. LEVOTHYROXINE SODIUM [Concomitant]
  7. TULOBUTEROL HYDROCHLORIDE (TULOBUTEROL HYDROCHLORIDE) [Concomitant]
  8. FLUTICASONE PROPIONATE [Concomitant]

REACTIONS (3)
  - ANOREXIA [None]
  - CARDIAC FAILURE [None]
  - HAEMOPTYSIS [None]
